FAERS Safety Report 7067438-8 (Version None)
Quarter: 2010Q4

REPORT INFORMATION
  Report Type: 
  Country: None (occurrence: None)
  Receive Date: 20101026
  Receipt Date: 20101026
  Transmission Date: 20110411
  Serious: Yes (Other)
  Sender: FDA-Public Use
  Company Number: None

PATIENT
  Sex: Female
  Weight: 75.7507 kg

DRUGS (23)
  1. PROLIA [Suspect]
     Indication: OSTEOPOROSIS
     Dosage: 60 MG EVERY 6 MONTHS SQ
     Route: 058
     Dates: start: 20101014, end: 20101014
  2. LANTUS [Concomitant]
  3. NEXIUM [Concomitant]
  4. TOPROL-XL [Concomitant]
  5. PREMARIN [Concomitant]
  6. ZETIA [Concomitant]
  7. TRICOR [Concomitant]
  8. NOVOLOG [Concomitant]
  9. VITAMIN D [Concomitant]
  10. FLOMAX [Concomitant]
  11. RECLAST [Concomitant]
  12. BETHANECHOL [Concomitant]
  13. VITAMIN B-12 [Concomitant]
  14. LASIX [Concomitant]
  15. METANX [Concomitant]
  16. OXYGEN [Concomitant]
  17. RANEXA [Concomitant]
  18. CARDIZEM [Concomitant]
  19. ALIGN [Concomitant]
  20. NITROGLYCERIN [Concomitant]
  21. LISINOPRIL [Concomitant]
  22. ASTELIN [Concomitant]
  23. IRON SUPPLEMENT [Concomitant]

REACTIONS (2)
  - SINUSITIS [None]
  - URINARY TRACT INFECTION [None]
